FAERS Safety Report 20206215 (Version 9)
Quarter: 2024Q1

REPORT INFORMATION
  Report Type: Report from Study
  Country: US (occurrence: US)
  Receive Date: 20211220
  Receipt Date: 20240202
  Transmission Date: 20240409
  Serious: Yes (Hospitalization, Other)
  Sender: FDA-Public Use
  Company Number: US-TAKEDA-2021TUS078980

PATIENT
  Age: 36 Year
  Sex: Female
  Weight: 61 kg

DRUGS (82)
  1. TEDUGLUTIDE [Suspect]
     Active Substance: TEDUGLUTIDE
     Indication: Short-bowel syndrome
     Dosage: 1 MILLIGRAM, QD
     Route: 042
     Dates: start: 20210128, end: 20210503
  2. TEDUGLUTIDE [Suspect]
     Active Substance: TEDUGLUTIDE
     Indication: Short-bowel syndrome
     Dosage: 1 MILLIGRAM, QD
     Route: 042
     Dates: start: 20210128, end: 20210503
  3. TEDUGLUTIDE [Suspect]
     Active Substance: TEDUGLUTIDE
     Indication: Short-bowel syndrome
     Dosage: 1 MILLIGRAM, QD
     Route: 042
     Dates: start: 20210128, end: 20210503
  4. TEDUGLUTIDE [Suspect]
     Active Substance: TEDUGLUTIDE
     Indication: Short-bowel syndrome
     Dosage: 1 MILLIGRAM, QD
     Route: 042
     Dates: start: 20210128, end: 20210503
  5. TEDUGLUTIDE [Suspect]
     Active Substance: TEDUGLUTIDE
     Dosage: 3 MILLIGRAM, QD
     Route: 042
     Dates: start: 20210503
  6. TEDUGLUTIDE [Suspect]
     Active Substance: TEDUGLUTIDE
     Dosage: 3 MILLIGRAM, QD
     Route: 042
     Dates: start: 20210503
  7. TEDUGLUTIDE [Suspect]
     Active Substance: TEDUGLUTIDE
     Dosage: 3 MILLIGRAM, QD
     Route: 042
     Dates: start: 20210503
  8. TEDUGLUTIDE [Suspect]
     Active Substance: TEDUGLUTIDE
     Dosage: 3 MILLIGRAM, QD
     Route: 042
     Dates: start: 20210503
  9. FLAGYL [Concomitant]
     Active Substance: METRONIDAZOLE\METRONIDAZOLE HYDROCHLORIDE
     Indication: Sepsis
     Dosage: 500 MILLIGRAM, Q8HR
     Route: 048
     Dates: start: 20211203, end: 20211203
  10. FLAGYL [Concomitant]
     Active Substance: METRONIDAZOLE\METRONIDAZOLE HYDROCHLORIDE
     Indication: Infection
  11. ZOFRAN [Concomitant]
     Active Substance: ONDANSETRON HYDROCHLORIDE
     Indication: Nausea
     Dosage: 4 MILLIGRAM
     Route: 042
     Dates: start: 20211203, end: 20211208
  12. HYDROMORPHONE [Concomitant]
     Active Substance: HYDROMORPHONE
     Indication: Pain
     Dosage: 1 MILLIGRAM, Q4HR
     Route: 042
     Dates: start: 20211203, end: 20211208
  13. HYDROMORPHONE [Concomitant]
     Active Substance: HYDROMORPHONE
     Dosage: 1 MILLIGRAM
     Route: 065
  14. DIPHENHYDRAMINE [Concomitant]
     Active Substance: DIPHENHYDRAMINE
     Indication: Pruritus
     Dosage: 25 MILLIGRAM, Q6HR
     Route: 048
     Dates: start: 20211203
  15. ISOVUE [Concomitant]
     Active Substance: IOPAMIDOL
     Indication: Contrast media allergy
     Dosage: UNK UNK, QD
     Route: 042
     Dates: start: 20211203, end: 20211203
  16. ISOVUE [Concomitant]
     Active Substance: IOPAMIDOL
     Dosage: 61 MILLIGRAM, QD
     Route: 065
  17. ISOVUE [Concomitant]
     Active Substance: IOPAMIDOL
     Dosage: 61 MILLIGRAM
     Route: 065
  18. VIMPAT [Concomitant]
     Active Substance: LACOSAMIDE
     Indication: Anticonvulsant drug level
     Dosage: 200 MILLIGRAM, QD
     Route: 048
     Dates: start: 20210718, end: 20211130
  19. VIMPAT [Concomitant]
     Active Substance: LACOSAMIDE
     Indication: Seizure
     Dosage: 100 MILLIGRAM, QD
     Route: 048
     Dates: start: 20211203
  20. LOPERAMIDE [Concomitant]
     Active Substance: LOPERAMIDE
     Indication: Diarrhoea
     Dosage: 2 MILLIGRAM, Q4HR
     Route: 048
     Dates: start: 20201104, end: 20210717
  21. LOPERAMIDE [Concomitant]
     Active Substance: LOPERAMIDE
     Dosage: 4 MILLIGRAM, QID
     Route: 048
     Dates: start: 20200809, end: 20200812
  22. ELIQUIS [Concomitant]
     Active Substance: APIXABAN
     Indication: Deep vein thrombosis
     Dosage: 5 MILLIGRAM, BID
     Route: 048
  23. ELIQUIS [Concomitant]
     Active Substance: APIXABAN
     Dosage: 5 MILLIGRAM, BID
     Route: 048
     Dates: start: 20210405, end: 20210717
  24. PERCOCET [Concomitant]
     Active Substance: ACETAMINOPHEN\OXYCODONE HYDROCHLORIDE
     Indication: Pain
     Dosage: 5 MILLIGRAM, Q4WEEKS
     Route: 048
     Dates: start: 20210718, end: 20210729
  25. PERCOCET [Concomitant]
     Active Substance: ACETAMINOPHEN\OXYCODONE HYDROCHLORIDE
     Dosage: 10 MILLIGRAM, Q4WEEKS
     Route: 048
     Dates: start: 20210718, end: 20210729
  26. AMBIEN [Concomitant]
     Active Substance: ZOLPIDEM TARTRATE
     Indication: Insomnia
     Dosage: 5 MILLIGRAM, QD
     Route: 048
     Dates: start: 20210718, end: 20210729
  27. TECHNETIUM 99M IDP [Concomitant]
     Indication: Imaging procedure
     Dosage: UNK UNK, QD
     Route: 058
     Dates: start: 20210717, end: 20210717
  28. CHOLECALCIFEROL [Concomitant]
     Active Substance: CHOLECALCIFEROL
     Indication: Hypovitaminosis
     Dosage: UNK UNK, QD
     Route: 048
     Dates: start: 20170803
  29. PROTINEX [Concomitant]
     Indication: Malnutrition
     Dosage: 30 MILLILITER, TID
     Route: 048
     Dates: start: 20180919
  30. CLONAZEPAM [Concomitant]
     Active Substance: CLONAZEPAM
     Indication: Anxiety
     Dosage: 0.50 MILLIGRAM
     Route: 048
     Dates: start: 20161026, end: 20200804
  31. CLONAZEPAM [Concomitant]
     Active Substance: CLONAZEPAM
     Dosage: 0.50 MILLIGRAM
     Route: 048
     Dates: start: 20200826, end: 20200827
  32. CYANOCOBALAMIN [Concomitant]
     Active Substance: CYANOCOBALAMIN
     Indication: Hypovitaminosis
     Dosage: 1000 MILLIGRAM, QD
     Route: 048
     Dates: start: 20160726
  33. CYANOCOBALAMIN [Concomitant]
     Active Substance: CYANOCOBALAMIN
     Indication: Malabsorption
     Dosage: 1000 MICROGRAM
     Route: 030
     Dates: start: 20230913
  34. ESCITALOPRAM [Concomitant]
     Active Substance: ESCITALOPRAM OXALATE
     Indication: Mixed anxiety and depressive disorder
     Dosage: 10 MILLIGRAM, QD
     Route: 048
     Dates: start: 20160726, end: 20200122
  35. FENTANYL [Concomitant]
     Active Substance: FENTANYL\FENTANYL CITRATE
     Indication: Pain
     Dosage: 75 MICROGRAM
     Route: 062
     Dates: start: 20170803, end: 20200720
  36. FENTANYL [Concomitant]
     Active Substance: FENTANYL\FENTANYL CITRATE
     Dosage: 50 MICROGRAM
     Route: 058
     Dates: start: 20200807, end: 20200807
  37. FENTANYL [Concomitant]
     Active Substance: FENTANYL\FENTANYL CITRATE
     Dosage: 50 MICROGRAM
     Route: 058
     Dates: start: 20200810, end: 20200810
  38. GLUTASOLVE [Concomitant]
     Indication: Malnutrition
     Dosage: 15 GRAM
     Route: 050
     Dates: start: 20180919
  39. GUAR GUM [Concomitant]
     Active Substance: GUAR GUM
     Indication: Malabsorption
     Dosage: UNK UNK, QID
     Route: 048
     Dates: start: 20180919
  40. ONDANSETRON [Concomitant]
     Active Substance: ONDANSETRON
     Indication: Nausea
     Dosage: 4 MILLIGRAM
     Route: 048
     Dates: start: 20210718, end: 20210729
  41. ONDANSETRON [Concomitant]
     Active Substance: ONDANSETRON
     Dosage: 4 MILLIGRAM
     Route: 048
     Dates: start: 20200804, end: 20200825
  42. VANCOMYCIN [Concomitant]
     Active Substance: VANCOMYCIN
     Indication: Sepsis
     Dosage: 750 MILLIGRAM, QD
     Route: 042
     Dates: start: 20200804, end: 20200811
  43. VANCOMYCIN [Concomitant]
     Active Substance: VANCOMYCIN
     Dosage: UNK UNK, BID
     Route: 058
     Dates: start: 20200825, end: 20200826
  44. VANCOMYCIN [Concomitant]
     Active Substance: VANCOMYCIN
     Dosage: 1250 MILLIGRAM, QD
     Route: 042
     Dates: start: 20200826, end: 20200831
  45. ROCEPHIN [Concomitant]
     Active Substance: CEFTRIAXONE SODIUM
     Indication: Sepsis
     Dosage: 2 GRAM, QD
     Route: 042
     Dates: start: 20200804, end: 20200826
  46. TRILEPTAL [Concomitant]
     Active Substance: OXCARBAZEPINE
     Indication: Seizure
     Dosage: 150 MILLIGRAM, BID
     Route: 048
     Dates: start: 20200805, end: 20200828
  47. HEPARIN [Concomitant]
     Active Substance: HEPARIN SODIUM
     Indication: Catheter removal
     Dosage: UNK
     Route: 058
     Dates: start: 20200805, end: 20200805
  48. VITAMIN A [Concomitant]
     Active Substance: VITAMIN A
     Indication: Mineral deficiency
     Dosage: UNK UNK, QD
     Route: 048
     Dates: start: 20200807, end: 20200812
  49. VITAMIN A [Concomitant]
     Active Substance: VITAMIN A
     Dosage: 3 MILLIGRAM, QD
     Route: 048
     Dates: start: 20200813
  50. LYRICA [Concomitant]
     Active Substance: PREGABALIN
     Indication: Anxiety
     Dosage: 50 MILLIGRAM, BID
     Route: 048
     Dates: start: 20200807, end: 20200825
  51. EFFEXOR [Concomitant]
     Active Substance: VENLAFAXINE HYDROCHLORIDE
     Indication: Depression
     Dosage: 37.5 MILLIGRAM, QD
     Route: 048
     Dates: start: 20200124, end: 20200807
  52. EFFEXOR [Concomitant]
     Active Substance: VENLAFAXINE HYDROCHLORIDE
     Dosage: 25 MILLIGRAM, QD
     Route: 048
     Dates: start: 20200807, end: 20200901
  53. MELATONIN [Concomitant]
     Active Substance: MELATONIN
     Indication: Insomnia
     Dosage: 3 MILLIGRAM
     Route: 048
     Dates: start: 20200807, end: 20200901
  54. LIDOCAINE [Concomitant]
     Active Substance: LIDOCAINE
     Indication: Catheter removal
     Dosage: UNK
     Route: 058
     Dates: start: 20200810, end: 20200810
  55. FLUCONAZOLE [Concomitant]
     Active Substance: FLUCONAZOLE
     Indication: Sepsis
     Dosage: 200 MILLIGRAM, QD
     Route: 042
     Dates: start: 20200804, end: 20200806
  56. FLUCONAZOLE [Concomitant]
     Active Substance: FLUCONAZOLE
     Indication: Systemic candida
     Dosage: 800 MILLIGRAM, QD
     Route: 042
     Dates: start: 20200827, end: 20200827
  57. FLUCONAZOLE [Concomitant]
     Active Substance: FLUCONAZOLE
     Dosage: 400 MILLIGRAM, QD
     Route: 042
     Dates: start: 20200828, end: 20200831
  58. LEVAQUIN [Concomitant]
     Active Substance: LEVOFLOXACIN
     Indication: Urinary tract infection
     Dosage: 500 MILLIGRAM, QD
     Route: 042
     Dates: start: 20200825
  59. LEVAQUIN [Concomitant]
     Active Substance: LEVOFLOXACIN
     Indication: Klebsiella infection
  60. POTASSIUM CHLORIDE [Concomitant]
     Active Substance: POTASSIUM CHLORIDE
     Indication: Hypokalaemia
     Dosage: UNK
     Route: 042
     Dates: start: 20200825
  61. MICAFUNGIN [Concomitant]
     Active Substance: MICAFUNGIN SODIUM
     Indication: Urinary tract infection
     Dosage: 1000 MILLIGRAM, QD
     Route: 042
     Dates: start: 20200831, end: 20200911
  62. MICAFUNGIN [Concomitant]
     Active Substance: MICAFUNGIN SODIUM
     Indication: Fungaemia
  63. MICAFUNGIN [Concomitant]
     Active Substance: MICAFUNGIN SODIUM
     Indication: Klebsiella infection
  64. SEROQUEL [Concomitant]
     Active Substance: QUETIAPINE FUMARATE
     Indication: Insomnia
     Dosage: 25 MILLIGRAM, BID
     Route: 048
     Dates: start: 20200901, end: 20210928
  65. HALOPERIDOL [Concomitant]
     Active Substance: HALOPERIDOL
     Indication: Psychotic disorder
     Dosage: 5 MILLIGRAM
     Route: 050
     Dates: start: 20200901
  66. ZITHROMAX [Concomitant]
     Active Substance: AZITHROMYCIN DIHYDRATE
     Indication: Pneumonia bacterial
     Dosage: 500 MILLIGRAM, QD
     Route: 042
     Dates: start: 20200827, end: 20200829
  67. RISPERIDONE [Concomitant]
     Active Substance: RISPERIDONE
     Indication: Psychotic disorder
     Dosage: 1 MILLIGRAM, BID
     Route: 048
     Dates: start: 20200901
  68. IPRATROPIUM [Concomitant]
     Active Substance: IPRATROPIUM
     Indication: Pneumonia
     Dosage: 0.05 MILLIGRAM
     Route: 050
     Dates: start: 20200826, end: 20200827
  69. LORAZEPAM [Concomitant]
     Active Substance: LORAZEPAM
     Indication: Anxiety
     Dosage: 0.5 MILLIGRAM
     Route: 058
     Dates: start: 20200826, end: 20200826
  70. MEROPENEM [Concomitant]
     Active Substance: MEROPENEM
     Indication: Sepsis
     Dosage: 1 GRAM, QD
     Route: 042
     Dates: start: 20200826, end: 20200829
  71. METOPROLOL TARTRATE [Concomitant]
     Active Substance: METOPROLOL TARTRATE
     Indication: Tachycardia
     Dosage: 5 MILLIGRAM
     Route: 058
     Dates: start: 20200827, end: 20200827
  72. METHYLPREDNISOLONE ACETATE [Concomitant]
     Active Substance: METHYLPREDNISOLONE ACETATE
     Indication: Pneumonia
     Dosage: 40 MILLIGRAM
     Route: 058
     Dates: start: 20200827, end: 20200827
  73. ACETAMINOPHEN [Concomitant]
     Active Substance: ACETAMINOPHEN
     Indication: Pain
     Dosage: 325 MILLIGRAM
     Route: 048
     Dates: start: 20210930
  74. OXYCODONE [Concomitant]
     Active Substance: OXYCODONE\OXYCODONE HYDROCHLORIDE
     Indication: Pain
     Dosage: 10 MILLIGRAM
     Route: 048
     Dates: start: 20210930, end: 20211016
  75. GLUTAMINE [Concomitant]
     Active Substance: GLUTAMINE
     Indication: Hypovitaminosis
     Dosage: 15 GRAM, BID
     Route: 048
     Dates: start: 20210503
  76. GLUTAMINE [Concomitant]
     Active Substance: GLUTAMINE
     Indication: Mineral deficiency
  77. MYCAMINE [Concomitant]
     Active Substance: MICAFUNGIN SODIUM
     Indication: Candida infection
     Dosage: 150 MILLIGRAM, QD
     Route: 042
     Dates: start: 20210718, end: 20210729
  78. PANTOPRAZOLE [Concomitant]
     Active Substance: PANTOPRAZOLE
     Indication: Nausea
     Dosage: 40 MILLIGRAM, QD
     Route: 042
     Dates: start: 20210718, end: 20210729
  79. BENADRYL [Concomitant]
     Active Substance: DIPHENHYDRAMINE HYDROCHLORIDE
     Indication: Multiple allergies
     Dosage: 25 MILLIGRAM
     Route: 042
     Dates: start: 20210718, end: 20210729
  80. DILAUDID [Concomitant]
     Active Substance: HYDROMORPHONE HYDROCHLORIDE
     Indication: Pain
     Dosage: 1 MILLIGRAM
     Route: 042
     Dates: start: 20210724, end: 20210729
  81. ATIVAN [Concomitant]
     Active Substance: LORAZEPAM
     Indication: Anxiety
     Dosage: 1 MILLIGRAM
     Route: 042
     Dates: start: 20210718, end: 20210729
  82. PANCRELIPASE [Concomitant]
     Active Substance: PANCRELIPASE
     Indication: Malabsorption
     Dosage: UNK UNK, TID
     Route: 048
     Dates: start: 20230913

REACTIONS (9)
  - Leukocytosis [Recovered/Resolved]
  - Leukopenia [Recovered/Resolved]
  - Anaemia [Recovered/Resolved]
  - Hyponatraemia [Recovered/Resolved]
  - Blood alkaline phosphatase increased [Recovered/Resolved]
  - Aspartate aminotransferase increased [Recovered/Resolved]
  - Alanine aminotransferase increased [Recovered/Resolved]
  - Ascites [Recovered/Resolved]
  - Seizure [Recovered/Resolved]

NARRATIVE: CASE EVENT DATE: 20211203
